FAERS Safety Report 5476656-1 (Version None)
Quarter: 2007Q4

REPORT INFORMATION
  Report Type: 
  Country: None (occurrence: None)
  Receive Date: 20071004
  Receipt Date: 20070924
  Transmission Date: 20080405
  Serious: Yes (Hospitalization)
  Sender: FDA-Public Use
  Company Number: CA-JNJFOC-20070805785

PATIENT
  Sex: Female
  Weight: 72.7 kg

DRUGS (12)
  1. REMICADE [Suspect]
     Route: 042
  2. REMICADE [Suspect]
     Route: 042
  3. REMICADE [Suspect]
     Indication: CROHN'S DISEASE
     Route: 042
  4. FOSAMAX [Concomitant]
  5. PREVACID [Concomitant]
  6. TAMOFEN [Concomitant]
  7. PENTASA [Concomitant]
  8. PREDNISONE [Concomitant]
  9. ELTROXIN [Concomitant]
  10. ELTROXIN [Concomitant]
  11. ZOPIDONE [Concomitant]
  12. MERCAPTOPURINE [Concomitant]

REACTIONS (1)
  - CHRONIC OBSTRUCTIVE PULMONARY DISEASE [None]
